FAERS Safety Report 14217989 (Version 1)
Quarter: 2017Q4

REPORT INFORMATION
  Report Type: Spontaneous
  Country: US (occurrence: US)
  Receive Date: 20171123
  Receipt Date: 20171123
  Transmission Date: 20180321
  Serious: Yes (Death, Hospitalization)
  Sender: FDA-Public Use
  Company Number: US-SUN PHARMACEUTICAL INDUSTRIES LTD-2017US-155437

PATIENT

DRUGS (1)
  1. ACETAMINOPHEN. [Suspect]
     Active Substance: ACETAMINOPHEN
     Indication: TOOTHACHE
     Dosage: 6 G, DAILY
     Route: 064

REACTIONS (6)
  - Ascites [Fatal]
  - Maternal exposure during pregnancy [Unknown]
  - Cerebral ventricle dilatation [Fatal]
  - Congenital hepatomegaly [Fatal]
  - Brain injury [Fatal]
  - Pericardial effusion [Fatal]
